FAERS Safety Report 4588283-9 (Version None)
Quarter: 2005Q1

REPORT INFORMATION
  Report Type: 
  Country: None (occurrence: None)
  Receive Date: 20050222
  Receipt Date: 20050210
  Transmission Date: 20050727
  Serious: Yes (Hospitalization)
  Sender: FDA-Public Use
  Company Number: SE-JNJFOC-20050203297

PATIENT
  Age: 41 Year
  Sex: Female

DRUGS (23)
  1. REMICADE [Suspect]
     Indication: CROHN'S DISEASE
     Route: 042
  2. NEURONTIN [Concomitant]
  3. PANKREON [Concomitant]
  4. CALCICHEW-D3 [Concomitant]
  5. CALCICHEW-D3 [Concomitant]
  6. CITALOPRAM [Concomitant]
  7. FOLACIN [Concomitant]
  8. FOLACIN [Concomitant]
  9. PURINETHOL [Concomitant]
  10. ACETAMINOPHEN [Concomitant]
  11. NOZINAN [Concomitant]
  12. KONAKION [Concomitant]
  13. BEHEPAN [Concomitant]
  14. E-VIMIN [Concomitant]
  15. BETAPRED [Concomitant]
  16. STESOLID [Concomitant]
  17. IMPUGAN [Concomitant]
  18. MORFIN BIOGLAN [Concomitant]
  19. EMGESAN [Concomitant]
  20. SPIRONOLAKTON [Concomitant]
  21. DIMOR [Concomitant]
  22. PANTOPRAZOLE SODIUM [Concomitant]
     Route: 050
  23. KABLVEN [Concomitant]

REACTIONS (2)
  - POLYARTHRITIS [None]
  - SERUM SICKNESS [None]
